FAERS Safety Report 6856809-8 (Version None)
Quarter: 2010Q3

REPORT INFORMATION
  Report Type: 
  Country: None (occurrence: None)
  Receive Date: 20100719
  Receipt Date: 20100712
  Transmission Date: 20110219
  Serious: Yes (Hospitalization)
  Sender: FDA-Public Use
  Company Number: JP-BRISTOL-MYERS SQUIBB COMPANY-15130750

PATIENT
  Age: 31 Year
  Sex: Female
  Weight: 39 kg

DRUGS (7)
  1. ABILIFY [Suspect]
     Indication: SCHIZOPHRENIA
     Dosage: 08APR10/15APR(6MG:8D);16APR/22APR(12MG:7D);23APR/27APR(24MG:5D);28APR/17MAY(18MG:20D)
     Route: 048
     Dates: start: 20100408, end: 20100517
  2. AKINETON [Suspect]
     Indication: PARKINSONISM
     Dosage: TABS;29AP:2MG;30AP10:1MGTID;24MY10; INT DOSE DEC 30AP-13MY:3MG 14-18MY10:6MG/D  19-24MY10:3MG/D
     Route: 048
     Dates: start: 20100429, end: 20100524
  3. CHLORPROMAZINE HCL [Suspect]
     Indication: SCHIZOPHRENIA
     Route: 048
     Dates: start: 20100507, end: 20100517
  4. LORAZEPAM [Concomitant]
     Dosage: TABS
     Dates: start: 20100401, end: 20100513
  5. TALION [Concomitant]
     Dosage: TABS
     Dates: start: 20100408
  6. RIVOTRIL [Concomitant]
     Dosage: TABS
     Dates: start: 20100428
  7. SILECE [Concomitant]
     Dosage: TABS
     Dates: start: 20100430

REACTIONS (5)
  - CHOLECYSTITIS [None]
  - GALLBLADDER DISORDER [None]
  - HEPATITIS [None]
  - LIVER DISORDER [None]
  - PARKINSONISM [None]
